FAERS Safety Report 13017244 (Version 2)
Quarter: 2016Q4

REPORT INFORMATION
  Report Type: Spontaneous
  Country: FR (occurrence: FR)
  Receive Date: 20161212
  Receipt Date: 20161220
  Transmission Date: 20170207
  Serious: Yes (Hospitalization)
  Sender: FDA-Public Use
  Company Number: FR-PFIZER INC-2016564998

PATIENT
  Age: 71 Year
  Sex: Male

DRUGS (12)
  1. AMLOR [Suspect]
     Active Substance: AMLODIPINE BESYLATE
     Indication: HYPERTENSION
     Dosage: 5 MG, 1X/DAY IN THE MORNING
     Route: 048
  2. TRINITRINE [Suspect]
     Active Substance: NITROGLYCERIN
     Dosage: 1 DF, 1X/DAY
     Route: 003
     Dates: end: 20160712
  3. BRILIQUE [Suspect]
     Active Substance: TICAGRELOR
     Dosage: 90 MG, 2X/DAY IN THE MORNING AND IN THE EVENING
     Route: 048
  4. RABEPRAZOLE [Concomitant]
     Active Substance: RABEPRAZOLE
     Dosage: 10 MG, 1X/DAY IN THE MORNING
     Route: 048
  5. KARDEGIC [Concomitant]
     Active Substance: ASPIRIN LYSINE
     Indication: PROPHYLAXIS
     Dosage: 75 MG, 1X/DAY AT NOON
     Route: 048
  6. URBANYL [Concomitant]
     Active Substance: CLOBAZAM
     Dosage: 10 MG, 1X/DAY
     Route: 048
  7. DANTROLENE SODIUM. [Concomitant]
     Active Substance: DANTROLENE SODIUM
     Dosage: 1 DF, 2X/DAY IN THE MORNING AND IN THE EVENING
     Route: 048
  8. ALDACTAZINE [Suspect]
     Active Substance: ALTHIAZIDE\SPIRONOLACTONE
     Indication: HYPERTENSION
     Dosage: 25 MG, 1X/DAY IN THE MORNING
     Route: 048
     Dates: end: 20160712
  9. CANDESARTAN CILEXETIL. [Suspect]
     Active Substance: CANDESARTAN CILEXETIL
     Indication: HYPERTENSION
     Dosage: 8 MG, 1X/DAY IN THE MORNING
     Route: 048
  10. GABAPENTIN. [Concomitant]
     Active Substance: GABAPENTIN
     Dosage: 2 DF OF 600 MG, 3X/DAY IN THE MORNING, AT NOON, AND IN THE EVENING
     Route: 048
  11. LASILIX /00032601/ [Suspect]
     Active Substance: FUROSEMIDE
     Indication: ACUTE PULMONARY OEDEMA
     Dosage: 2 DF OF 40 MG IN THE MORNING AND 1 DF OF 40 MG AT NOON
     Route: 048
  12. ATORVASTATIN [Concomitant]
     Active Substance: ATORVASTATIN
     Dosage: 10 MG, 1X/DAY IN THE MORNING
     Route: 048
     Dates: end: 20160712

REACTIONS (6)
  - Loss of consciousness [Recovered/Resolved]
  - Malaise [Recovered/Resolved]
  - Fall [Unknown]
  - Hypotension [Recovered/Resolved]
  - Acute kidney injury [Recovered/Resolved]
  - Head injury [Unknown]

NARRATIVE: CASE EVENT DATE: 201607
